FAERS Safety Report 10554179 (Version 2)
Quarter: 2014Q4

REPORT INFORMATION
  Report Type: Spontaneous
  Country: US (occurrence: None)
  Receive Date: 20141028
  Receipt Date: 20141202
  Transmission Date: 20150529
  Serious: Yes (Other)
  Sender: FDA-Public Use
  Company Number: KAD201410-001310

PATIENT
  Sex: Male

DRUGS (2)
  1. INTERFERON ALFACON-1 [Suspect]
     Active Substance: INTERFERON ALFACON-1
  2. RIBAVIRIN (RIBAVIRIN) [Suspect]
     Active Substance: RIBAVIRIN

REACTIONS (3)
  - Feeling abnormal [None]
  - Malaise [None]
  - Apparent death [None]
